FAERS Safety Report 9504593 (Version 2)
Quarter: 2013Q3

REPORT INFORMATION
  Report Type: Spontaneous
  Country: GB (occurrence: GB)
  Receive Date: 20130906
  Receipt Date: 20130909
  Transmission Date: 20140515
  Serious: Yes (Life-Threatening)
  Sender: FDA-Public Use
  Company Number: GB-B.I. PHARMACEUTICALS,INC./RIDGEFIELD-2013-BI-27476UK

PATIENT
  Age: 17 Year
  Sex: Female

DRUGS (2)
  1. PRADAXA [Suspect]
     Indication: ANTIPHOSPHOLIPID SYNDROME
     Dates: start: 2010, end: 2011
  2. PRADAXA [Suspect]
     Dosage: 6000 MG
     Dates: start: 2011, end: 2011

REACTIONS (2)
  - Depression [Recovered/Resolved]
  - Suicide attempt [Recovered/Resolved]
